FAERS Safety Report 21670069 (Version 1)
Quarter: 2022Q4

REPORT INFORMATION
  Report Type: Spontaneous
  Country: US (occurrence: US)
  Receive Date: 20221201
  Receipt Date: 20221201
  Transmission Date: 20230112
  Serious: No
  Sender: FDA-Public Use
  Company Number: US-Cardinal Health 414-NPHS-AE-22-16

PATIENT
  Sex: Male

DRUGS (3)
  1. DEXTROSE [Concomitant]
     Active Substance: DEXTROSE
  2. INSULIN NOS [Concomitant]
     Active Substance: INSULIN NOS
  3. FLUDEOXYGLUCOSE F-18 [Suspect]
     Active Substance: FLUDEOXYGLUCOSE F-18
     Indication: Positron emission tomogram
     Route: 042
     Dates: start: 20220523, end: 20220523

REACTIONS (2)
  - Drug ineffective [Recovered/Resolved]
  - Off label use [Recovered/Resolved]

NARRATIVE: CASE EVENT DATE: 20220523
